FAERS Safety Report 8645079 (Version 2)
Quarter: 2012Q4

REPORT INFORMATION
  Report Type: 
  Country: US (occurrence: US)
  Receive Date: 20120702
  Receipt Date: 20121213
  Transmission Date: 20130627
  Serious: No
  Sender: FDA-Public Use
  Company Number: PHEH2012US012849

PATIENT
  Age: 61 Year
  Sex: Female

DRUGS (6)
  1. TASIGNA [Suspect]
     Indication: CHRONIC MYELOID LEUKAEMIA
     Dosage: 400 mg, BID
     Route: 048
     Dates: start: 20120621
  2. LOSARTAN POTASSIUM W/HYDROCHLOROTHIAZIDE [Concomitant]
  3. CADUET [Concomitant]
  4. SYNTHROID [Concomitant]
  5. POTASSIUM CHLORIDE [Concomitant]
  6. CYTOMEL [Concomitant]

REACTIONS (2)
  - Gastrooesophageal reflux disease [Recovered/Resolved]
  - Alopecia [Not Recovered/Not Resolved]
